FAERS Safety Report 5087550-2 (Version None)
Quarter: 2006Q3

REPORT INFORMATION
  Report Type: 
  Country: None (occurrence: None)
  Receive Date: 20060824
  Receipt Date: 20060821
  Transmission Date: 20061208
  Serious: Yes (Disabling)
  Sender: FDA-Public Use
  Company Number: GB-GLAXOSMITHKLINE-B0435306A

PATIENT
  Age: 65 Year
  Sex: Female
  Weight: 63.5 kg

DRUGS (4)
  1. FLIXONASE [Suspect]
     Indication: CHRONIC SINUSITIS
     Route: 045
     Dates: start: 20060710, end: 20060715
  2. CETIRIZINE HCL [Suspect]
  3. THYROXIN [Concomitant]
     Route: 048
  4. WARFARIN SODIUM [Concomitant]

REACTIONS (1)
  - FALL [None]
